FAERS Safety Report 10204018 (Version 2)
Quarter: 2014Q2

REPORT INFORMATION
  Report Type: Report from Study
  Country: US (occurrence: US)
  Receive Date: 20140529
  Receipt Date: 20140618
  Transmission Date: 20141212
  Serious: Yes (Other)
  Sender: FDA-Public Use
  Company Number: US-IPSEN BIOPHARMACEUTICALS, INC.-2014-2591

PATIENT
  Age: 18 Year
  Sex: Male

DRUGS (5)
  1. INCRELEX [Suspect]
     Indication: PRIMARY INSULIN LIKE GROWTH FACTOR-1 DEFICIENCY
     Route: 065
     Dates: start: 20090128, end: 20090203
  2. INCRELEX [Suspect]
     Route: 065
     Dates: start: 20090204, end: 20090210
  3. INCRELEX [Suspect]
     Route: 065
     Dates: start: 20090211
  4. INCRELEX [Suspect]
     Route: 058
  5. ANDROGENS [Concomitant]
     Indication: PRODUCT USED FOR UNKNOWN INDICATION
     Dosage: NOT REPORTED
     Route: 065

REACTIONS (6)
  - Adenoidectomy [Recovered/Resolved]
  - Nasal septum deviation [Recovered/Resolved]
  - Tendon pain [Unknown]
  - Tendon pain [Unknown]
  - Lipohypertrophy [Unknown]
  - Drug dose omission [Unknown]
